FAERS Safety Report 24298250 (Version 1)
Quarter: 2024Q3

REPORT INFORMATION
  Report Type: Spontaneous
  Country: US (occurrence: US)
  Receive Date: 20240909
  Receipt Date: 20240909
  Transmission Date: 20241017
  Serious: Yes (Other)
  Sender: SLATE RUN
  Company Number: US-SLATERUN-2024SRSPO00146

PATIENT
  Age: 64 Year
  Sex: Female

DRUGS (1)
  1. BUPROPION HYDROCHLORIDE [Suspect]
     Active Substance: BUPROPION HYDROCHLORIDE
     Indication: Depression
     Route: 065

REACTIONS (6)
  - Intentional self-injury [Unknown]
  - Suicidal ideation [Unknown]
  - Suicide attempt [Unknown]
  - Speech disorder [Unknown]
  - Personal relationship issue [Unknown]
  - Drug ineffective [Unknown]
